FAERS Safety Report 11895611 (Version 1)
Quarter: 2016Q1

REPORT INFORMATION
  Report Type: Spontaneous
  Country: US (occurrence: None)
  Receive Date: 20160106
  Receipt Date: 20160106
  Transmission Date: 20160526
  Serious: No
  Sender: FDA-Public Use
  Company Number: None

PATIENT

DRUGS (1)
  1. POLYETHYLENE GLYCOL 3350 POLYETHYLENE GLYCOL [Suspect]
     Active Substance: POLYETHYLENE GLYCOL 3350
     Dosage: POWDER FOR RECONSTITUTION, BOTTLE, 255 GRAMS?
     Route: 048

REACTIONS (3)
  - Drug dispensing error [None]
  - Incorrect dose administered [None]
  - Electrolyte imbalance [None]
